FAERS Safety Report 18377350 (Version 2)
Quarter: 2020Q4

REPORT INFORMATION
  Report Type: Report from Study
  Country: GB (occurrence: GB)
  Receive Date: 20201013
  Receipt Date: 20201105
  Transmission Date: 20210114
  Serious: Yes (Hospitalization)
  Sender: FDA-Public Use
  Company Number: GB-JNJFOC-20201011509

PATIENT
  Age: 68 Year
  Sex: Male
  Weight: 109 kg

DRUGS (15)
  1. STELARA [Suspect]
     Active Substance: USTEKINUMAB
     Indication: PSORIASIS
     Route: 058
     Dates: start: 20161006
  2. FOLIC ACID. [Concomitant]
     Active Substance: FOLIC ACID
     Dates: start: 20160315
  3. PARACETAMOL [Concomitant]
     Active Substance: ACETAMINOPHEN
     Dates: start: 20160301
  4. FUROSEMIDE. [Concomitant]
     Active Substance: FUROSEMIDE
     Dates: start: 20170601
  5. VITAMIN D3 [Concomitant]
     Active Substance: CHOLECALCIFEROL
     Dates: start: 20170613
  6. LANSOPRAZOLE. [Concomitant]
     Active Substance: LANSOPRAZOLE
     Dates: start: 20171001
  7. ATORVASTATIN [Concomitant]
     Active Substance: ATORVASTATIN
     Dates: start: 20170601
  8. AMITRIPTYLINE [Concomitant]
     Active Substance: AMITRIPTYLINE
     Dates: start: 20171001
  9. CALCIUM                            /00060701/ [Concomitant]
     Active Substance: CALCIUM
     Dates: start: 20170613
  10. PREDNISOLONE. [Concomitant]
     Active Substance: PREDNISOLONE
     Dates: start: 19970101
  11. DOCUSATE SODIUM. [Concomitant]
     Active Substance: DOCUSATE SODIUM
     Dates: start: 20050101
  12. CODEINE [Concomitant]
     Active Substance: CODEINE
     Dates: start: 20160301
  13. METHOTREXATE. [Concomitant]
     Active Substance: METHOTREXATE
     Dates: start: 20160315
  14. PYRIDOXINE [Concomitant]
     Active Substance: PYRIDOXINE
     Dates: start: 20180701
  15. MORPHINE [Concomitant]
     Active Substance: MORPHINE
     Dates: start: 20160301

REACTIONS (3)
  - Facial paresis [Recovered/Resolved]
  - Dysarthria [Recovered/Resolved]
  - Gastroenteritis [Recovered/Resolved]

NARRATIVE: CASE EVENT DATE: 20190923
